FAERS Safety Report 6536066-2 (Version None)
Quarter: 2010Q1

REPORT INFORMATION
  Report Type: 
  Country: None (occurrence: None)
  Receive Date: 20100113
  Receipt Date: 20091019
  Transmission Date: 20100710
  Serious: No
  Sender: FDA-Public Use
  Company Number: US-ALLERGAN-0913474US

PATIENT
  Age: 60 Year
  Sex: Female
  Weight: 97.506 kg

DRUGS (23)
  1. LATISSE [Suspect]
     Indication: HYPOTRICHOSIS
     Dosage: UNK
     Route: 061
     Dates: start: 20090201
  2. METOPROLOL SUCCINATE [Concomitant]
     Indication: HYPERTENSION
  3. LOVAZA [Concomitant]
     Dosage: UNK
  4. CELEBREX [Concomitant]
     Dosage: UNK
     Dates: start: 20090722
  5. NASONEX [Concomitant]
     Indication: CHRONIC SINUSITIS
  6. ASTELIN [Concomitant]
     Indication: CHRONIC SINUSITIS
  7. METRONIDAZOLE [Concomitant]
     Indication: ROSACEA
  8. VICODIN [Concomitant]
     Indication: ARTHRALGIA
     Dosage: UNK
  9. VICODIN [Concomitant]
     Indication: BACK PAIN
  10. VICODIN [Concomitant]
     Indication: PAIN IN EXTREMITY
  11. ASPIRIN [Concomitant]
  12. ADVIL [Concomitant]
     Dosage: UNK
  13. ALEVE (CAPLET) [Concomitant]
     Dosage: UNK
  14. CALCIUM [Concomitant]
  15. MULTI-VITAMIN [Concomitant]
  16. GLUCOSAMINE W/METHYLSULFONYLMETHANE [Concomitant]
  17. FISH OIL [Concomitant]
  18. FLAXSEED OIL [Concomitant]
  19. SALINE [Concomitant]
  20. REFRESH TEARS [Concomitant]
     Indication: DRY EYE
  21. SYSTANE [Concomitant]
     Indication: DRY EYE
  22. LACTAID [Concomitant]
     Indication: LACTOSE INTOLERANCE
     Dosage: UNK
  23. DENAVIR [Concomitant]
     Indication: ORAL HERPES
     Dosage: UNK

REACTIONS (1)
  - THERAPEUTIC RESPONSE DECREASED [None]
